FAERS Safety Report 7935347-5 (Version None)
Quarter: 2011Q4

REPORT INFORMATION
  Report Type: 
  Country: None (occurrence: None)
  Receive Date: 20111122
  Receipt Date: 20111114
  Transmission Date: 20120403
  Serious: Yes (Other)
  Sender: FDA-Public Use
  Company Number: CA-ABBOTT-11P-028-0874205-00

PATIENT
  Sex: Female
  Weight: 86.26 kg

DRUGS (9)
  1. CORTISONE ACETATE [Concomitant]
     Indication: PRODUCT USED FOR UNKNOWN INDICATION
  2. COVERSIL [Concomitant]
     Indication: HYPERTENSION
     Route: 048
     Dates: start: 20070101
  3. UNKNOWN COCKTAIL OF MEDICATIONS [Concomitant]
     Indication: PRODUCT USED FOR UNKNOWN INDICATION
  4. LOPERAMIDE HCL [Concomitant]
     Indication: HORMONE THERAPY
     Route: 048
     Dates: start: 20111001
  5. HUMIRA [Suspect]
     Indication: CROHN'S DISEASE
     Route: 058
     Dates: start: 20081127, end: 20111102
  6. METHOTREXATE [Concomitant]
     Indication: CROHN'S DISEASE
     Dosage: WEEKLY
     Route: 058
     Dates: start: 20080101
  7. ATIVAN [Concomitant]
     Indication: SLEEP DISORDER THERAPY
     Route: 048
     Dates: start: 20080101
  8. PREDNISONE TAB [Suspect]
     Indication: CROHN'S DISEASE
     Route: 048
     Dates: start: 20080101
  9. PROMETRIUM [Concomitant]
     Indication: HYPERHIDROSIS
     Route: 048
     Dates: start: 20111001

REACTIONS (6)
  - FOOT FRACTURE [None]
  - OSTEOPOROSIS [None]
  - PELVIC FRACTURE [None]
  - WRIST FRACTURE [None]
  - HIP FRACTURE [None]
  - PYREXIA [None]
